FAERS Safety Report 23265536 (Version 1)
Quarter: 2023Q4

REPORT INFORMATION
  Report Type: Spontaneous
  Country: BR (occurrence: None)
  Receive Date: 20231206
  Receipt Date: 20231206
  Transmission Date: 20240109
  Serious: Yes (Hospitalization)
  Sender: FDA-Public Use
  Company Number: BR-ADAMAS Pharma-ADM202311-004562

PATIENT
  Age: 79 Year
  Sex: Female

DRUGS (12)
  1. AMANTADINE HYDROCHLORIDE [Suspect]
     Active Substance: AMANTADINE HYDROCHLORIDE
     Indication: Parkinson^s disease
  2. AMANTADINE HYDROCHLORIDE [Suspect]
     Active Substance: AMANTADINE HYDROCHLORIDE
  3. AMANTADINE HYDROCHLORIDE [Suspect]
     Active Substance: AMANTADINE HYDROCHLORIDE
  4. AMANTADINE HYDROCHLORIDE [Suspect]
     Active Substance: AMANTADINE HYDROCHLORIDE
     Dosage: ON DAY 5
  5. PRAMIPEXOLE [Concomitant]
     Active Substance: PRAMIPEXOLE
  6. PRAMIPEXOLE [Concomitant]
     Active Substance: PRAMIPEXOLE
  7. BIPERIDEN [Concomitant]
     Active Substance: BIPERIDEN
  8. RISPERIDONE [Concomitant]
     Active Substance: RISPERIDONE
  9. RISPERIDONE [Concomitant]
     Active Substance: RISPERIDONE
  10. CARBIDOPA\LEVODOPA [Concomitant]
     Active Substance: CARBIDOPA\LEVODOPA
     Dosage: EACH DF CONTAINS 125/12.5 MG
  11. CARBIDOPA\LEVODOPA [Concomitant]
     Active Substance: CARBIDOPA\LEVODOPA
     Dosage: EACH DF CONTAINS 250/25 MG 5 TIMES DAILY (WITH HALF A PILL TWICE A DAY)
  12. CARBIDOPA\LEVODOPA [Concomitant]
     Active Substance: CARBIDOPA\LEVODOPA
     Dosage: EACH DF CONTAINS 250/25 MG 5 TIMES DAILY (WITH HALF A PILL TWICE A DAY)

REACTIONS (3)
  - Toxic encephalopathy [Recovered/Resolved]
  - Parkinsonism hyperpyrexia syndrome [Recovered/Resolved]
  - Therapy interrupted [Unknown]
